FAERS Safety Report 4663143-3 (Version None)
Quarter: 2005Q2

REPORT INFORMATION
  Report Type: 
  Country: None (occurrence: None)
  Receive Date: 20050513
  Receipt Date: 20050503
  Transmission Date: 20051028
  Serious: Yes (Hospitalization)
  Sender: FDA-Public Use
  Company Number: 800365

PATIENT
  Age: 59 Year
  Sex: Male

DRUGS (4)
  1. DIANEAL [Suspect]
     Indication: RENAL FAILURE CHRONIC
     Dosage: 5 L;QD;INTRAPERITONEAL
     Route: 033
  2. RENAGEL [Concomitant]
  3. CLARITIN [Concomitant]
  4. NEXIUM [Concomitant]

REACTIONS (3)
  - HAEMODIALYSIS [None]
  - PERITONITIS [None]
  - PROCEDURAL COMPLICATION [None]
